FAERS Safety Report 6854882-4 (Version None)
Quarter: 2010Q3

REPORT INFORMATION
  Report Type: 
  Country: None (occurrence: None)
  Receive Date: 20100717
  Receipt Date: 20080223
  Transmission Date: 20110219
  Serious: No
  Sender: FDA-Public Use
  Company Number: US-PFIZER INC-2008002790

PATIENT
  Sex: Female
  Weight: 64.4 kg

DRUGS (2)
  1. CHANTIX [Suspect]
     Indication: SMOKING CESSATION THERAPY
     Route: 048
     Dates: start: 20070723, end: 20070801
  2. VITAMINS [Concomitant]

REACTIONS (2)
  - CONSTIPATION [None]
  - PANIC ATTACK [None]
